FAERS Safety Report 17532378 (Version 1)
Quarter: 2020Q1

REPORT INFORMATION
  Report Type: Spontaneous
  Country: US (occurrence: US)
  Receive Date: 20200311
  Receipt Date: 20200311
  Transmission Date: 20200409
  Serious: No
  Sender: FDA-Public Use
  Company Number: None

PATIENT
  Age: 61 Year
  Sex: Male
  Weight: 116.85 kg

DRUGS (2)
  1. HCG (CHORIONIC GONADOTROPHIN) [Suspect]
     Active Substance: GONADOTROPHIN, CHORIONIC
     Indication: WEIGHT DECREASED
     Route: 003
     Dates: start: 20191126, end: 20191202
  2. HCG [Concomitant]
     Active Substance: GONADOTROPHIN, CHORIONIC
     Dates: start: 20191126, end: 20191202

REACTIONS (2)
  - Rash [None]
  - Pruritus [None]

NARRATIVE: CASE EVENT DATE: 20191126
